FAERS Safety Report 4390891-5 (Version None)
Quarter: 2004Q2

REPORT INFORMATION
  Report Type: 
  Country: None (occurrence: None)
  Receive Date: 20040630
  Receipt Date: 20040616
  Transmission Date: 20050107
  Serious: Yes (Hospitalization)
  Sender: FDA-Public Use
  Company Number: 165356

PATIENT
  Age: 59 Year
  Sex: Female
  Weight: 77.1115 kg

DRUGS (6)
  1. AVONEX [Suspect]
     Indication: MULTIPLE SCLEROSIS
     Dosage: 30 MCG QW IM
     Route: 030
     Dates: start: 20010312
  2. FIORICET [Concomitant]
  3. SINEMET [Concomitant]
  4. REQUIP [Concomitant]
  5. ELDEPRYL [Concomitant]
  6. PREVACID [Concomitant]

REACTIONS (3)
  - DIVERTICULITIS [None]
  - GALLBLADDER DISORDER [None]
  - PNEUMONIA [None]
